FAERS Safety Report 9279024 (Version 1)
Quarter: 2013Q2

REPORT INFORMATION
  Report Type: Spontaneous
  Country: AT (occurrence: AT)
  Receive Date: 20130508
  Receipt Date: 20130508
  Transmission Date: 20140414
  Serious: Yes (Death)
  Sender: FDA-Public Use
  Company Number: AT-ACTELION-A-CH2013-82611

PATIENT
  Age: 80 Year
  Sex: Male

DRUGS (2)
  1. TRACLEER [Suspect]
     Indication: PULMONARY FIBROSIS
     Dosage: 125 UNK, UNK
     Route: 048
  2. VENTAVIS BAYER SCHERING [Concomitant]
     Indication: PULMONARY ARTERIAL HYPERTENSION
     Route: 055

REACTIONS (1)
  - Pulmonary fibrosis [Fatal]
